FAERS Safety Report 6329341-8 (Version None)
Quarter: 2009Q3

REPORT INFORMATION
  Report Type: 
  Country: None (occurrence: None)
  Receive Date: 20090826
  Receipt Date: 20090818
  Transmission Date: 20100115
  Serious: Yes (Other)
  Sender: FDA-Public Use
  Company Number: IT-WATSON-2009-06737

PATIENT
  Age: 79 Year
  Sex: Female

DRUGS (1)
  1. FLUOROURACIL [Suspect]
     Indication: COLON CANCER
     Dosage: 375 MG/M2, DAILY, FOR 5 DAYS OF EVERY 4 WEEKS
     Route: 042

REACTIONS (1)
  - STRESS CARDIOMYOPATHY [None]
